FAERS Safety Report 6369161-1 (Version None)
Quarter: 2009Q3

REPORT INFORMATION
  Report Type: 
  Country: None (occurrence: None)
  Receive Date: 20090922
  Receipt Date: 20090911
  Transmission Date: 20100115
  Serious: Yes (Other)
  Sender: FDA-Public Use
  Company Number: DE-GILEAD-E2B_00000423

PATIENT
  Sex: Male
  Weight: 80 kg

DRUGS (6)
  1. AMBRISENTAN [Suspect]
     Indication: PULMONARY ARTERIAL HYPERTENSION
     Route: 048
     Dates: start: 20090815, end: 20090827
  2. REVATIO [Concomitant]
     Indication: PULMONARY ARTERIAL HYPERTENSION
     Route: 048
  3. SPIRONOLACTONE [Concomitant]
     Route: 048
  4. L-THYROXIN [Concomitant]
     Route: 048
  5. OMEPRAZOL [Concomitant]
     Route: 048
  6. VENTAVIS [Concomitant]
     Route: 055

REACTIONS (2)
  - EPISTAXIS [None]
  - FACE OEDEMA [None]
